FAERS Safety Report 15411229 (Version 1)
Quarter: 2018Q3

REPORT INFORMATION
  Report Type: Spontaneous
  Country: US (occurrence: US)
  Receive Date: 20180919
  Receipt Date: 20180919
  Transmission Date: 20181010
  Serious: Yes (Hospitalization)
  Sender: FDA-Public Use
  Company Number: None

PATIENT
  Age: 47 Year
  Sex: Male
  Weight: 67.95 kg

DRUGS (6)
  1. SILTUSSIN DM [Concomitant]
     Active Substance: DEXTROMETHORPHAN HYDROBROMIDE\GUAIFENESIN
  2. OMEPRAZOLE. [Concomitant]
     Active Substance: OMEPRAZOLE
  3. MULTIPLE VITAMINS [Concomitant]
     Active Substance: VITAMINS
  4. LEVOFLOXACIN. [Suspect]
     Active Substance: LEVOFLOXACIN
     Indication: INFLUENZA LIKE ILLNESS
     Dosage: ?          QUANTITY:1 DF DOSAGE FORM;?
     Route: 048
     Dates: start: 20180910, end: 20180912
  5. PRAMIPEXOLE DIHYDROCHLORIDE. [Concomitant]
     Active Substance: PRAMIPEXOLE DIHYDROCHLORIDE
  6. HYDROXYZINE [Concomitant]
     Active Substance: HYDROXYZINE HYDROCHLORIDE

REACTIONS (11)
  - Fatigue [None]
  - Hyperaesthesia [None]
  - Hypoaesthesia [None]
  - Gastric haemorrhage [None]
  - Hiccups [None]
  - Haematochezia [None]
  - Decreased appetite [None]
  - Diaphragmatic spasm [None]
  - Burning sensation [None]
  - Dyspnoea [None]
  - Paraesthesia [None]

NARRATIVE: CASE EVENT DATE: 20180911
